FAERS Safety Report 6566847-0 (Version None)
Quarter: 2010Q1

REPORT INFORMATION
  Report Type: 
  Country: None (occurrence: None)
  Receive Date: 20100202
  Receipt Date: 20100127
  Transmission Date: 20100710
  Serious: Yes (Hospitalization)
  Sender: FDA-Public Use
  Company Number: B0605681A

PATIENT
  Sex: Female

DRUGS (6)
  1. CLAMOXYL [Suspect]
     Indication: TOOTHACHE
     Dosage: 500MG UNKNOWN
     Route: 048
     Dates: start: 20091020, end: 20091025
  2. PROPOFAN [Concomitant]
     Indication: TOOTHACHE
     Route: 048
     Dates: start: 20091020, end: 20091025
  3. SOLUPRED [Concomitant]
     Indication: TOOTHACHE
     Route: 048
     Dates: start: 20091020, end: 20091025
  4. NAXY [Concomitant]
     Indication: TOOTHACHE
     Dosage: 250MG UNKNOWN
     Route: 048
     Dates: start: 20091026
  5. PARACETAMOL [Concomitant]
     Indication: TOOTHACHE
     Route: 048
     Dates: start: 20091026, end: 20091028
  6. LAMALINE [Concomitant]
     Indication: TOOTHACHE
     Dosage: 4TAB PER DAY
     Route: 048
     Dates: start: 20091029, end: 20091029

REACTIONS (5)
  - CONDITION AGGRAVATED [None]
  - RASH [None]
  - RASH ERYTHEMATOUS [None]
  - SKIN PLAQUE [None]
  - TOXIC SKIN ERUPTION [None]
